FAERS Safety Report 11719979 (Version 2)
Quarter: 2015Q4

REPORT INFORMATION
  Report Type: Spontaneous
  Country: JP (occurrence: JP)
  Receive Date: 20151110
  Receipt Date: 20151118
  Transmission Date: 20160304
  Serious: Yes (Life-Threatening)
  Sender: FDA-Public Use
  Company Number: JP-009507513-1511JPN005342

PATIENT
  Age: 37 Year
  Sex: Female

DRUGS (9)
  1. MIDODRINE HYDROCHLORIDE. [Concomitant]
     Active Substance: MIDODRINE HYDROCHLORIDE
     Dosage: 2 MG, QD
     Route: 048
     Dates: end: 20151006
  2. REFLEX [Suspect]
     Active Substance: MIRTAZAPINE
     Indication: BIPOLAR DISORDER
     Dosage: 30 MG, QD
     Route: 048
     Dates: start: 20150806, end: 20151006
  3. SENNOSIDES. [Concomitant]
     Active Substance: SENNOSIDES
     Dosage: 24 MG, QD
     Route: 048
     Dates: end: 20151006
  4. RISPERIDONE. [Concomitant]
     Active Substance: RISPERIDONE
     Dosage: 3 MG, QD
     Route: 048
     Dates: end: 20151006
  5. BOFU-TSUSHO-SAN [Suspect]
     Active Substance: HERBALS
     Dosage: UNK
     Route: 048
     Dates: end: 20151006
  6. URSODIOL. [Concomitant]
     Active Substance: URSODIOL
     Dosage: 600 MG, QD
     Route: 048
     Dates: end: 20151006
  7. DAI-SAIKO-TO [Suspect]
     Active Substance: HERBALS
     Dosage: UNK
     Route: 048
     Dates: end: 20151006
  8. NITRAZEPAM [Concomitant]
     Active Substance: NITRAZEPAM
     Dosage: 3 TABLETS, QD
     Route: 048
     Dates: end: 20151006
  9. CLONAZEPAM. [Concomitant]
     Active Substance: CLONAZEPAM
     Dosage: 2 MG, QD
     Route: 048
     Dates: end: 20151006

REACTIONS (2)
  - Liver disorder [Not Recovered/Not Resolved]
  - Off label use [Unknown]

NARRATIVE: CASE EVENT DATE: 20150806
